FAERS Safety Report 24042304 (Version 7)
Quarter: 2024Q4

REPORT INFORMATION
  Report Type: Spontaneous
  Country: IN (occurrence: IN)
  Receive Date: 20240702
  Receipt Date: 20241230
  Transmission Date: 20250114
  Serious: Yes (Other)
  Sender: SANDOZ
  Company Number: IN-SANDOZ-SDZ2024IN060624

PATIENT
  Age: 49 Year
  Sex: Male

DRUGS (4)
  1. MYFORTIC [Suspect]
     Active Substance: MYCOPHENOLATE SODIUM
     Dosage: 720 MG, QD
     Route: 048
  2. MYFORTIC [Suspect]
     Active Substance: MYCOPHENOLATE SODIUM
     Indication: Renal transplant
     Dosage: 720 MG, QD, 360 MG, BID
     Route: 048
  3. TACROLIMUS [Suspect]
     Active Substance: TACROLIMUS
     Indication: Renal transplant
     Dosage: 4 MG, QD, 2 MG, BID
     Route: 048
  4. TACROLIMUS [Suspect]
     Active Substance: TACROLIMUS
     Dosage: UNK, 2MG (9AM)- 1.5MG (9PM)
     Route: 048

REACTIONS (21)
  - Asphyxia [Unknown]
  - Chronic kidney disease [Unknown]
  - Rectal haemorrhage [Unknown]
  - Cardiac failure acute [Unknown]
  - Renal impairment [Unknown]
  - New onset diabetes after transplantation [Unknown]
  - Pancreatitis acute [Unknown]
  - Lower respiratory tract infection [Unknown]
  - Toxicity to various agents [Unknown]
  - Hypoaesthesia [Unknown]
  - Peripheral venous disease [Unknown]
  - Hypoalbuminaemia [Unknown]
  - Generalised oedema [Unknown]
  - Epistaxis [Unknown]
  - Electrolyte imbalance [Unknown]
  - Weight increased [Unknown]
  - Infection [Unknown]
  - Dyspnoea [Unknown]
  - Abdominal pain [Unknown]
  - Hypertension [Unknown]
  - Product prescribing error [Unknown]

NARRATIVE: CASE EVENT DATE: 20240930
